FAERS Safety Report 9518662 (Version 2)
Quarter: 2013Q3

REPORT INFORMATION
  Report Type: Report from Study
  Country: CA (occurrence: CA)
  Receive Date: 20130912
  Receipt Date: 20130912
  Transmission Date: 20140515
  Serious: Yes (Life-Threatening, Hospitalization, Disabling, Other)
  Sender: FDA-Public Use
  Company Number: PHHY2013CA075032

PATIENT
  Sex: Male

DRUGS (9)
  1. CLOZARIL [Suspect]
     Indication: SCHIZOPHRENIA
     Dosage: 600 MG EVERY DAY (400 MG OF DOSE AT NIGHT)
     Route: 048
     Dates: start: 201212, end: 20130708
  2. CLOZARIL [Suspect]
     Dosage: DOSE REDUCED
  3. EPIVAL [Concomitant]
     Dosage: 500 MG, BID
  4. EPIVAL [Concomitant]
     Dosage: 1500 MG, UNK
  5. LORAZEPAM [Concomitant]
     Dosage: 1 MG, TID
  6. REMERON [Concomitant]
     Dosage: 30 MG, QMO
  7. PANTOLOC [Concomitant]
     Dosage: 40 MG, QD
  8. LATUDA [Concomitant]
     Dosage: 80 MG, QMO
  9. FOLIC ACID [Concomitant]
     Dosage: 5 MG, QD

REACTIONS (7)
  - Fall [Recovering/Resolving]
  - Confusional state [Recovering/Resolving]
  - Convulsion [Recovering/Resolving]
  - Myoclonus [Recovering/Resolving]
  - Tremor [Unknown]
  - Tongue biting [Unknown]
  - Delirium [Unknown]
